FAERS Safety Report 5806489-5 (Version None)
Quarter: 2008Q3

REPORT INFORMATION
  Report Type: 
  Country: None (occurrence: None)
  Receive Date: 20080710
  Receipt Date: 20080630
  Transmission Date: 20090109
  Serious: Yes (Hospitalization)
  Sender: FDA-Public Use
  Company Number: JP-PFIZER INC-2008055329

PATIENT
  Age: 46 Year
  Sex: Male

DRUGS (2)
  1. AZULFIDINE EN-TABS [Suspect]
     Indication: RHEUMATOID ARTHRITIS
     Dosage: DAILY DOSE:1000MG
     Route: 048
     Dates: start: 20080407, end: 20080504
  2. CELECOXIB [Concomitant]
     Route: 048
     Dates: start: 20080407, end: 20080504

REACTIONS (1)
  - DRUG RASH WITH EOSINOPHILIA AND SYSTEMIC SYMPTOMS [None]
